FAERS Safety Report 5267926-0 (Version None)
Quarter: 2007Q1

REPORT INFORMATION
  Report Type: 
  Country: None (occurrence: None)
  Receive Date: 20061213
  Receipt Date: 20050822
  Transmission Date: 20070707
  Serious: No
  Sender: FDA-Public Use
  Company Number: 2003UW17146

PATIENT
  Age: 44 Year
  Sex: Female

DRUGS (2)
  1. NOLVADEX [Suspect]
     Indication: BREAST CANCER IN SITU
     Dosage: 20 MG PO
     Route: 048
     Dates: start: 20010401, end: 20040101
  2. TAMOXIFEN CITRATE [Suspect]
     Indication: BREAST CANCER IN SITU
     Dosage: 20 MG
     Dates: start: 20040101

REACTIONS (10)
  - ENDOMETRIAL HYPERTROPHY [None]
  - MENORRHAGIA [None]
  - MENSTRUATION IRREGULAR [None]
  - OVARIAN CYST [None]
  - POLYP [None]
  - RASH [None]
  - UTERINE LEIOMYOMA [None]
  - UTERINE POLYP [None]
  - WEIGHT DECREASED [None]
  - WEIGHT INCREASED [None]
